FAERS Safety Report 16628377 (Version 1)
Quarter: 2019Q3

REPORT INFORMATION
  Report Type: Spontaneous
  Country: US (occurrence: US)
  Receive Date: 20190612
  Receipt Date: 20190612
  Transmission Date: 20191004
  Serious: Yes (Hospitalization)
  Sender: FDA-Public Use
  Company Number: None

PATIENT
  Age: 84 Year
  Sex: Female

DRUGS (6)
  1. ALBUTEROL AER HFA [Concomitant]
  2. LABETALOL TAB [Concomitant]
  3. AMLODIPINE TAB [Concomitant]
  4. ESBRIET [Suspect]
     Active Substance: PIRFENIDONE
     Indication: PULMONARY FIBROSIS
     Dosage: 3 T TID PO
     Route: 048
     Dates: start: 20181207
  5. FUROSEMIDE TAB [Concomitant]
  6. CHOLESTYRAM POW [Concomitant]

REACTIONS (2)
  - Pruritus [None]
  - Eye pruritus [None]

NARRATIVE: CASE EVENT DATE: 201905
